FAERS Safety Report 4741438-2 (Version None)
Quarter: 2005Q3

REPORT INFORMATION
  Report Type: 
  Country: None (occurrence: None)
  Receive Date: 20050808
  Receipt Date: 20050725
  Transmission Date: 20060218
  Serious: Yes (Death, Other)
  Sender: FDA-Public Use
  Company Number: 2005103160

PATIENT
  Age: 58 Year
  Sex: Female

DRUGS (2)
  1. CELEBREX [Suspect]
     Indication: BACK PAIN
     Dosage: 200 MG (200 MG, 1 IN 1 D)
     Dates: start: 20020701
  2. VIOXX [Suspect]
     Indication: BACK PAIN
     Dates: start: 19960101, end: 20020701

REACTIONS (5)
  - BACK PAIN [None]
  - CHEST DISCOMFORT [None]
  - CHEST PAIN [None]
  - CORONARY ARTERY ATHEROSCLEROSIS [None]
  - MUSCLE STRAIN [None]
